FAERS Safety Report 9456468 (Version 1)
Quarter: 2013Q3

REPORT INFORMATION
  Report Type: Spontaneous
  Country: CH (occurrence: None)
  Receive Date: 20130809
  Receipt Date: 20130809
  Transmission Date: 20140515
  Serious: Yes (Hospitalization)
  Sender: FDA-Public Use
  Company Number: 20130423

PATIENT
  Age: 45 Year
  Sex: Male

DRUGS (1)
  1. FERINJECT [Suspect]
     Indication: IRON DEFICIENCY ANAEMIA
     Route: 042
     Dates: start: 20130703, end: 20130703

REACTIONS (5)
  - Dyspnoea [None]
  - Chest pain [None]
  - Peripheral coldness [None]
  - Vasospasm [None]
  - Tremor [None]
